FAERS Safety Report 5739039-2 (Version None)
Quarter: 2008Q2

REPORT INFORMATION
  Report Type: 
  Country: None (occurrence: None)
  Receive Date: 20080515
  Receipt Date: 20080515
  Transmission Date: 20081010
  Serious: Yes (Hospitalization)
  Sender: FDA-Public Use
  Company Number: None

PATIENT
  Age: 81 Year
  Sex: Male
  Weight: 84 kg

DRUGS (2)
  1. HEPARIN [Suspect]
     Indication: CORONARY ARTERY BYPASS
     Dosage: 25,000 UNITS X1  IV
     Route: 042
     Dates: start: 20080409
  2. HEPARIN [Suspect]
     Dosage: 8,000 UNITS X1  IV
     Route: 042
     Dates: start: 20080409

REACTIONS (1)
  - DRUG EFFECT DECREASED [None]
